FAERS Safety Report 6743344-0 (Version None)
Quarter: 2010Q2

REPORT INFORMATION
  Report Type: 
  Country: None (occurrence: None)
  Receive Date: 20100527
  Receipt Date: 20100512
  Transmission Date: 20101027
  Serious: Yes (Life-Threatening, Other)
  Sender: FDA-Public Use
  Company Number: US-ELI_LILLY_AND_COMPANY-US201005003963

PATIENT
  Sex: Male

DRUGS (1)
  1. EFFIENT [Suspect]
     Dates: start: 20100501

REACTIONS (2)
  - DRUG DOSE OMISSION [None]
  - THROMBOSIS IN DEVICE [None]
